FAERS Safety Report 5806616-X (Version None)
Quarter: 2008Q3

REPORT INFORMATION
  Report Type: 
  Country: None (occurrence: None)
  Receive Date: 20080710
  Receipt Date: 20080630
  Transmission Date: 20090109
  Serious: Yes (Other)
  Sender: FDA-Public Use
  Company Number: PHHY2008DE12526

PATIENT
  Sex: Male

DRUGS (12)
  1. ZOLEDRONIC ACID [Suspect]
     Indication: OSTEOPOROSIS
     Dosage: 5 MG PER DAY
     Route: 042
     Dates: start: 20071130, end: 20071130
  2. AMLOLICH [Concomitant]
     Dosage: 5 MG PER DAY
  3. CALCIMAGON-D3 [Concomitant]
  4. DOMPERIDONE [Concomitant]
     Dosage: 10 MG PER DAY
  5. GODAMED [Concomitant]
     Dosage: 100 TAH TABLETS
  6. MAALOXAN [Concomitant]
     Dosage: 25 MVAL LIQUID
  7. MACROGOL [Concomitant]
  8. METOHEXAL [Concomitant]
     Dosage: 47.5 MG PER DAY
  9. NOVAMINSULFON [Concomitant]
  10. OMEPRAZOLE [Concomitant]
     Dosage: 1000 MG PER DAY
  11. SUCRALFATE [Concomitant]
     Dosage: 1000 MG PER DAY
  12. TRAZODONE HCL [Concomitant]

REACTIONS (1)
  - PARKINSON'S DISEASE [None]
